FAERS Safety Report 10423639 (Version 2)
Quarter: 2014Q3

REPORT INFORMATION
  Report Type: Report from Study
  Country: AR (occurrence: AR)
  Receive Date: 20140902
  Receipt Date: 20140902
  Transmission Date: 20150326
  Serious: Yes (Other)
  Sender: FDA-Public Use
  Company Number: AR-US-EMD SERONO, INC.-7298339

PATIENT
  Sex: Female

DRUGS (2)
  1. REBIF [Suspect]
     Active Substance: INTERFERON BETA-1A
     Indication: MULTIPLE SCLEROSIS
     Dates: start: 20101006, end: 20111118
  2. REBIF [Suspect]
     Active Substance: INTERFERON BETA-1A
     Dates: start: 20111121

REACTIONS (5)
  - Gastroenteritis [Unknown]
  - Gastritis [Unknown]
  - Migraine [Recovered/Resolved]
  - Influenza like illness [Recovered/Resolved]
  - Coeliac disease [Unknown]
